FAERS Safety Report 6296271-X (Version None)
Quarter: 2009Q3

REPORT INFORMATION
  Report Type: 
  Country: None (occurrence: None)
  Receive Date: 20090804
  Receipt Date: 20090728
  Transmission Date: 20100115
  Serious: Yes (Hospitalization)
  Sender: FDA-Public Use
  Company Number: FR-AVENTIS-200914403EU

PATIENT
  Age: 74 Year
  Sex: Female

DRUGS (5)
  1. FLUDEX                             /00340101/ [Suspect]
     Dosage: DOSE: UNK
     Route: 048
     Dates: end: 20090602
  2. TRIATEC                            /00885601/ [Suspect]
     Dosage: DOSE: UNK
     Route: 048
     Dates: end: 20090526
  3. BISOPROLOL [Concomitant]
  4. LEVOTHYROX [Concomitant]
  5. KALEORID [Concomitant]

REACTIONS (1)
  - ECZEMA [None]
